FAERS Safety Report 8769784 (Version 5)
Quarter: 2013Q1

REPORT INFORMATION
  Report Type: Spontaneous
  Country: US (occurrence: US)
  Receive Date: 20120905
  Receipt Date: 20130102
  Transmission Date: 20140127
  Serious: No
  Sender: FDA-Public Use
  Company Number: US-009507513-1208USA008241

PATIENT
  Sex: Male
  Weight: 70.3 kg

DRUGS (4)
  1. PEG-INTRON [Suspect]
     Indication: HEPATITIS C
     Dosage: 0.5 MICROGRAM, UNK
     Dates: start: 20120813
  2. PEG-INTRON [Suspect]
     Dosage: 0.45 MICROGRAM, UNK
     Dates: start: 201212
  3. RIBAVIRIN [Suspect]
     Indication: HEPATITIS C
     Dosage: UNK
     Route: 048
     Dates: start: 20120813
  4. VICTRELIS [Suspect]
     Indication: HEPATITIS C
     Dosage: UNK
     Route: 048
     Dates: start: 20120910

REACTIONS (16)
  - Injection site erythema [Unknown]
  - Pain [Unknown]
  - Injection site erythema [Unknown]
  - Injection site erythema [Unknown]
  - Injection site rash [Unknown]
  - Weight decreased [Unknown]
  - Pollakiuria [Unknown]
  - Pyrexia [Unknown]
  - Pyrexia [Unknown]
  - Fatigue [Unknown]
  - White blood cell count decreased [Unknown]
  - Neutrophil count decreased [Unknown]
  - Injection site reaction [Unknown]
  - Decreased appetite [Unknown]
  - Injection site inflammation [Unknown]
  - Pain [Unknown]
